FAERS Safety Report 9283913 (Version 1)
Quarter: 2013Q2

REPORT INFORMATION
  Report Type: Spontaneous
  Country: FR (occurrence: FR)
  Receive Date: 20130510
  Receipt Date: 20130510
  Transmission Date: 20140414
  Serious: Yes (Hospitalization)
  Sender: FDA-Public Use
  Company Number: PHHY2013FR045295

PATIENT
  Sex: 0

DRUGS (10)
  1. VOLTARENE [Suspect]
     Indication: BACK PAIN
     Dosage: UNK UKN, UNK
     Route: 048
     Dates: start: 2008, end: 20130118
  2. FUROSEMIDE [Suspect]
     Indication: HYPERTENSION
     Dosage: 40 MG, 5 TIMES A DAY
     Dates: end: 201301
  3. FUROSEMIDE [Suspect]
     Dosage: 125 MG, PER DAY
     Dates: start: 201301
  4. KARDEGIC [Suspect]
     Dosage: 160 MG, QD
     Dates: end: 20130118
  5. CANDESARTAN [Suspect]
     Dosage: UNK UKN, UNK
  6. JANUMET [Suspect]
     Dosage: UNK UKN, UNK
  7. LANTUS [Concomitant]
  8. HUMALOG [Concomitant]
  9. SIMVASTATINE [Concomitant]
  10. SEROPLEX [Concomitant]

REACTIONS (6)
  - Gastric ulcer [Recovered/Resolved with Sequelae]
  - Melaena [Recovered/Resolved]
  - Anaemia [Not Recovered/Not Resolved]
  - Asthenia [Unknown]
  - Pallor [Unknown]
  - Renal failure acute [Recovered/Resolved]
